FAERS Safety Report 12730413 (Version 3)
Quarter: 2016Q4

REPORT INFORMATION
  Report Type: Report from Study
  Country: CA (occurrence: CA)
  Receive Date: 20160909
  Receipt Date: 20161114
  Transmission Date: 20170207
  Serious: Yes (Hospitalization)
  Sender: FDA-Public Use
  Company Number: CA-HLSUS-2016-CA-000438

PATIENT
  Age: 64 Year
  Sex: Male

DRUGS (5)
  1. RANITIDINE. [Concomitant]
     Active Substance: RANITIDINE
  2. TRAZODONE [Concomitant]
     Active Substance: TRAZODONE HYDROCHLORIDE
  3. CLOZARIL [Suspect]
     Active Substance: CLOZAPINE
     Route: 048
     Dates: start: 19950511
  4. VENTOLIN [Concomitant]
     Active Substance: ALBUTEROL SULFATE
  5. SYMBICORT [Concomitant]
     Active Substance: BUDESONIDE\FORMOTEROL FUMARATE DIHYDRATE

REACTIONS (6)
  - Fall [Unknown]
  - Coma [Unknown]
  - Thrombocytopenia [Unknown]
  - Sepsis [Unknown]
  - Pneumonia [Unknown]
  - Faecaloma [Unknown]

NARRATIVE: CASE EVENT DATE: 2016
